FAERS Safety Report 15662351 (Version 3)
Quarter: 2019Q1

REPORT INFORMATION
  Report Type: Other
  Country: JP (occurrence: JP)
  Receive Date: 20181127
  Receipt Date: 20190304
  Transmission Date: 20190417
  Serious: Yes (Death, Hospitalization, Other)
  Sender: FDA-Public Use
  Company Number: JP-GE HEALTHCARE LIFE SCIENCES-2018CSU004774

PATIENT

DRUGS (1)
  1. OMNIPAQUE [Suspect]
     Active Substance: IOHEXOL
     Indication: PRODUCT USED FOR UNKNOWN INDICATION
     Dosage: 92 ML, SINGLE
     Route: 040
     Dates: start: 20181113, end: 20181113

REACTIONS (4)
  - Respiratory arrest [Fatal]
  - Multiple organ dysfunction syndrome [Fatal]
  - Anaphylactic shock [Fatal]
  - Intestinal ischaemia [Fatal]

NARRATIVE: CASE EVENT DATE: 20181113
